FAERS Safety Report 4928623-1 (Version None)
Quarter: 2006Q1

REPORT INFORMATION
  Report Type: 
  Country: None (occurrence: None)
  Receive Date: 20060301
  Receipt Date: 20060221
  Transmission Date: 20060701
  Serious: Yes (Other)
  Sender: FDA-Public Use
  Company Number: SE-JNJFOC-20060202151

PATIENT
  Age: 12 Month

DRUGS (2)
  1. REMICADE [Suspect]
     Indication: CROHN'S DISEASE
     Route: 050
  2. IMUREL [Concomitant]
     Route: 065

REACTIONS (2)
  - METASTASES TO LUNG [None]
  - SQUAMOUS CELL CARCINOMA [None]
